FAERS Safety Report 9206198 (Version 1)
Quarter: 2013Q2

REPORT INFORMATION
  Report Type: Spontaneous
  Country: US (occurrence: None)
  Receive Date: 20130401
  Receipt Date: 20130401
  Transmission Date: 20140414
  Serious: Yes (Other)
  Sender: FDA-Public Use
  Company Number: None

PATIENT
  Age: 37 Year
  Sex: Female
  Weight: 68.04 kg

DRUGS (1)
  1. LEUPROLIDE ACETATE [Suspect]
     Indication: IN VITRO FERTILISATION
     Dates: start: 20130326, end: 20130329

REACTIONS (3)
  - Abdominal pain [None]
  - Diarrhoea [None]
  - Abdominal pain upper [None]
